FAERS Safety Report 22137554 (Version 1)
Quarter: 2023Q1

REPORT INFORMATION
  Report Type: Spontaneous
  Country: US (occurrence: None)
  Receive Date: 20230325
  Receipt Date: 20230325
  Transmission Date: 20230418
  Serious: No
  Sender: FDA-Public Use
  Company Number: 2023A051942

PATIENT
  Sex: Female

DRUGS (1)
  1. SYMBICORT [Suspect]
     Active Substance: BUDESONIDE\FORMOTEROL FUMARATE DIHYDRATE
     Dosage: UNKNOWN UNKNOWN
     Route: 055

REACTIONS (8)
  - Hypertension [Unknown]
  - Sinusitis [Unknown]
  - Cough [Unknown]
  - Lung disorder [Unknown]
  - Asthma [Unknown]
  - Choking [Unknown]
  - Product taste abnormal [Unknown]
  - Pneumonia [Unknown]
